FAERS Safety Report 9206757 (Version 1)
Quarter: 2013Q2

REPORT INFORMATION
  Report Type: Spontaneous
  Country: IT (occurrence: IT)
  Receive Date: 20130403
  Receipt Date: 20130403
  Transmission Date: 20140414
  Serious: Yes (Life-Threatening)
  Sender: FDA-Public Use
  Company Number: IT-SANOFI-AVENTIS-2013SA031961

PATIENT
  Age: 64 Year
  Sex: Female

DRUGS (6)
  1. INSULIN GLARGINE [Suspect]
     Indication: DIABETES MELLITUS
     Route: 058
     Dates: start: 20000101, end: 20130207
  2. INSULIN HUMAN REGULAR [Suspect]
     Indication: DIABETES MELLITUS
     Route: 058
     Dates: start: 20000101, end: 20130207
  3. INSULIN HUMAN REGULAR [Suspect]
     Indication: DIABETES MELLITUS
     Route: 058
  4. SPIRIVA [Concomitant]
     Indication: LUNG DISORDER
     Dosage: 18 MCG INHALATIONAL CAPSULE
  5. SERETIDE [Concomitant]
     Indication: LUNG DISORDER
     Dosage: INHALATION SUSPENSION 25/125 MCG
  6. OMEPRAZOLE [Concomitant]
     Dosage: 20 MG

REACTIONS (4)
  - Chest pain [Recovered/Resolved]
  - Hypoglycaemia [Recovered/Resolved]
  - Cold sweat [Recovered/Resolved]
  - Nausea [Recovered/Resolved]
